FAERS Safety Report 21107708 (Version 6)
Quarter: 2023Q1

REPORT INFORMATION
  Report Type: Spontaneous
  Country: US (occurrence: US)
  Receive Date: 20220720
  Receipt Date: 20230315
  Transmission Date: 20230417
  Serious: No
  Sender: FDA-Public Use
  Company Number: US-LUNDBECK-DKLU3050073

PATIENT
  Age: 82 Year
  Sex: Female

DRUGS (1)
  1. VYEPTI [Suspect]
     Active Substance: EPTINEZUMAB-JJMR
     Indication: Migraine
     Route: 041
     Dates: start: 20220707

REACTIONS (7)
  - Fatigue [Unknown]
  - Head discomfort [Recovered/Resolved]
  - Migraine [Unknown]
  - Cluster headache [Unknown]
  - Headache [Unknown]
  - Visual impairment [Recovered/Resolved]
  - Anxiety [Unknown]

NARRATIVE: CASE EVENT DATE: 20220708
